FAERS Safety Report 4961493-4 (Version None)
Quarter: 2006Q1

REPORT INFORMATION
  Report Type: 
  Country: None (occurrence: None)
  Receive Date: 20060329
  Receipt Date: 20060302
  Transmission Date: 20060701
  Serious: Yes (Other)
  Sender: FDA-Public Use
  Company Number: S06-FRA-00804-01

PATIENT
  Sex: Female

DRUGS (2)
  1. CITALOPRAM HYDROBROMIDE [Suspect]
     Indication: ANXIETY
     Dosage: 10 MG QD; PO
     Route: 048
  2. BISOPROLOL FUMARATE [Suspect]
     Indication: CARDIAC FAILURE

REACTIONS (1)
  - RENAL FAILURE [None]
